FAERS Safety Report 23427525 (Version 1)
Quarter: 2024Q1

REPORT INFORMATION
  Report Type: Spontaneous
  Country: US (occurrence: None)
  Receive Date: 20240119
  Receipt Date: 20240119
  Transmission Date: 20240410
  Serious: Yes (Other)
  Sender: FDA-Public Use
  Company Number: None

PATIENT
  Sex: Female

DRUGS (1)
  1. TEZSPIRE [Suspect]
     Active Substance: TEZEPELUMAB-EKKO
     Indication: Asthma
     Dosage: OTHER QUANTITY : 2 INJECTION(S);?OTHER FREQUENCY : ONCE A MONTH;?OTHER ROUTE : INJECTION;?
     Route: 050
     Dates: start: 20230815, end: 20230923

REACTIONS (2)
  - Oedema peripheral [None]
  - Arthralgia [None]

NARRATIVE: CASE EVENT DATE: 20230901
